FAERS Safety Report 24601377 (Version 2)
Quarter: 2025Q1

REPORT INFORMATION
  Report Type: Spontaneous
  Country: IT (occurrence: IT)
  Receive Date: 20241111
  Receipt Date: 20250117
  Transmission Date: 20250408
  Serious: Yes (Other)
  Sender: PFIZER
  Company Number: IT-002147023-NVSC2024IT206807

PATIENT
  Age: 15 Year
  Sex: Male

DRUGS (2)
  1. SIROLIMUS [Suspect]
     Active Substance: SIROLIMUS
     Route: 065
  2. CANAKINUMAB [Suspect]
     Active Substance: CANAKINUMAB
     Route: 065

REACTIONS (4)
  - Interleukin level increased [Unknown]
  - Condition aggravated [Unknown]
  - Lung disorder [Unknown]
  - Off label use [Unknown]
